FAERS Safety Report 5602286-4 (Version None)
Quarter: 2008Q1

REPORT INFORMATION
  Report Type: 
  Country: None (occurrence: None)
  Receive Date: 20080125
  Receipt Date: 20080116
  Transmission Date: 20080703
  Serious: Yes (Death)
  Sender: FDA-Public Use
  Company Number: CA-JNJFOC-20070805361

PATIENT
  Age: 95 Year
  Sex: Male

DRUGS (4)
  1. FENTANYL [Suspect]
     Route: 062
  2. FENTANYL [Suspect]
     Indication: DRUG USE FOR UNKNOWN INDICATION
     Dosage: TWO 50 UG/HR PATCHES
     Route: 062
  3. RISPERDAL [Concomitant]
     Indication: DRUG USE FOR UNKNOWN INDICATION
     Route: 065
  4. DILANTIN [Concomitant]
     Route: 065

REACTIONS (2)
  - MEDICATION ERROR [None]
  - OVERDOSE [None]
